FAERS Safety Report 20304825 (Version 2)
Quarter: 2022Q1

REPORT INFORMATION
  Report Type: Spontaneous
  Country: US (occurrence: None)
  Receive Date: 20220106
  Receipt Date: 20220223
  Transmission Date: 20220423
  Serious: No
  Sender: FDA-Public Use
  Company Number: 2021A899348

PATIENT
  Age: 61 Year
  Weight: 55.8 kg

DRUGS (3)
  1. BUDESONIDE\FORMOTEROL\GLYCOPYRRONIUM [Suspect]
     Active Substance: BUDESONIDE\FORMOTEROL\GLYCOPYRRONIUM
     Indication: Bronchitis
     Dosage: 160MCG/9MCG/4.8MCG 120 DOSE INHALER, TWO TIMES A DAY
     Route: 055
     Dates: start: 202109
  2. BUDESONIDE\FORMOTEROL\GLYCOPYRRONIUM [Suspect]
     Active Substance: BUDESONIDE\FORMOTEROL\GLYCOPYRRONIUM
     Indication: COVID-19
     Dosage: 160MCG/9MCG/4.8MCG 120 DOSE INHALER, TWO TIMES A DAY
     Route: 055
     Dates: start: 202109
  3. BUDESONIDE\FORMOTEROL\GLYCOPYRRONIUM [Suspect]
     Active Substance: BUDESONIDE\FORMOTEROL\GLYCOPYRRONIUM
     Indication: Asthma
     Dosage: 160MCG/9MCG/4.8MCG 120 DOSE INHALER, TWO TIMES A DAY
     Route: 055
     Dates: start: 202109

REACTIONS (5)
  - Productive cough [Unknown]
  - Dyspnoea [Unknown]
  - Angiopathy [Unknown]
  - Intentional device misuse [Unknown]
  - Device malfunction [Unknown]

NARRATIVE: CASE EVENT DATE: 20210101
